FAERS Safety Report 6037653-0 (Version None)
Quarter: 2009Q1

REPORT INFORMATION
  Report Type: 
  Country: None (occurrence: None)
  Receive Date: 20090114
  Receipt Date: 20090108
  Transmission Date: 20090719
  Serious: No
  Sender: FDA-Public Use
  Company Number: US-B.I. PHARMACEUTICALS,INC./RIDGEFIELD-2008-BP-18205BP

PATIENT
  Sex: Female

DRUGS (6)
  1. SPIRIVA [Suspect]
     Indication: CHRONIC OBSTRUCTIVE PULMONARY DISEASE
     Dosage: 18MCG
     Route: 055
  2. SPIRIVA [Suspect]
     Indication: ASTHMA
  3. XOPENEX HFA [Concomitant]
     Indication: DYSPNOEA
  4. ALBUTEROL [Concomitant]
     Indication: DYSPNOEA
  5. HYDROCHLOROT [Concomitant]
  6. CPAP [Concomitant]

REACTIONS (8)
  - APHONIA [None]
  - DYSPHONIA [None]
  - DYSPNOEA [None]
  - PHARYNGEAL OEDEMA [None]
  - PULMONARY CONGESTION [None]
  - THROAT IRRITATION [None]
  - TOTAL LUNG CAPACITY DECREASED [None]
  - VOCAL CORD DISORDER [None]
